FAERS Safety Report 10409542 (Version 1)
Quarter: 2014Q3

REPORT INFORMATION
  Report Type: Spontaneous
  Country: FR (occurrence: None)
  Receive Date: 20140822
  Receipt Date: 20140822
  Transmission Date: 20150326
  Serious: Yes (Hospitalization)
  Sender: FDA-Public Use
  Company Number: AUR-APL-2014-08407

PATIENT
  Age: 85 Year
  Sex: Male

DRUGS (4)
  1. AMLODIPINE CAPSULE, HARD 5MG (AMLODIINE) CAPSULE, HARD 5MG [Suspect]
     Active Substance: AMLODIPINE BESYLATE
     Indication: HYPERTENSION
     Route: 048
     Dates: end: 20140610
  2. DEROXAT [Suspect]
     Active Substance: PAROXETINE HYDROCHLORIDE
     Indication: PRODUCT USED FOR UNKNOWN INDICATION
     Route: 048
     Dates: start: 20140605, end: 20140610
  3. SERESTA (OXAZEPAM) [Concomitant]
     Active Substance: OXAZEPAM
  4. KARDEGIC [Concomitant]
     Active Substance: ASPIRIN LYSINE

REACTIONS (4)
  - Dehydration [None]
  - Hyponatraemia [None]
  - Fall [None]
  - Hypotension [None]

NARRATIVE: CASE EVENT DATE: 20140610
